FAERS Safety Report 11888967 (Version 2)
Quarter: 2016Q1

REPORT INFORMATION
  Report Type: Spontaneous
  Country: US (occurrence: US)
  Receive Date: 20160105
  Receipt Date: 20160216
  Transmission Date: 20160526
  Serious: No
  Sender: FDA-Public Use
  Company Number: US-PFIZER INC-2015435490

PATIENT
  Age: 59 Year
  Sex: Male
  Weight: 103 kg

DRUGS (17)
  1. FLUTICASONE [Concomitant]
     Active Substance: FLUTICASONE\FLUTICASONE PROPIONATE
     Indication: SEASONAL ALLERGY
     Dosage: 15 UG, TWO SPRAYS IN EACH NOSTRIL DAILY
  2. ZOLPIDEM [Concomitant]
     Active Substance: ZOLPIDEM\ZOLPIDEM TARTRATE
     Indication: SLEEP DISORDER
     Dosage: 10 MG, ONE AT NIGHT
  3. MELOXICAM. [Concomitant]
     Active Substance: MELOXICAM
     Dosage: 15 MG, 1X/DAY
  4. MORPHINE [Concomitant]
     Active Substance: MORPHINE
  5. SOMA [Concomitant]
     Active Substance: CARISOPRODOL
     Indication: MUSCLE RELAXANT THERAPY
     Dosage: 350 MG, EVERY 6 HOURS
  6. XANAX [Concomitant]
     Active Substance: ALPRAZOLAM
     Indication: ANXIETY
     Dosage: 1 MG, UNK
  7. TRAMADOL. [Concomitant]
     Active Substance: TRAMADOL
     Indication: PAIN
     Dosage: 50 MG, EVERY 6 TO 8 HOURS
  8. CORTISONE [Concomitant]
     Active Substance: CORTISONE\HYDROCORTISONE
  9. FLUTICASONE [Concomitant]
     Active Substance: FLUTICASONE\FLUTICASONE PROPIONATE
     Indication: MYCOTIC ALLERGY
  10. TYLENOL [Concomitant]
     Active Substance: ACETAMINOPHEN
     Dosage: 325 MG, EVERY 6 HOURS AS NEEDED
  11. LYRICA [Suspect]
     Active Substance: PREGABALIN
     Dosage: 150 MG, 3X/DAY
     Route: 048
  12. LORTAB [Concomitant]
     Active Substance: ACETAMINOPHEN\HYDROCODONE BITARTRATE
     Dosage: 5 MG, EVERY 6 HOURS AS NEEDED
  13. ATORVASTATIN [Concomitant]
     Active Substance: ATORVASTATIN
     Dosage: 20 MG, 1X/DAY
  14. AMLODIPINE [Concomitant]
     Active Substance: AMLODIPINE BESYLATE
     Dosage: 10 MG, 1X/DAY
  15. FENOFIBRATE. [Concomitant]
     Active Substance: FENOFIBRATE
     Dosage: 160 MG, 1X/DAY
  16. CARVEDILOL. [Concomitant]
     Active Substance: CARVEDILOL
     Indication: CARDIAC DISORDER
     Dosage: 6.25 MG, 2X/DAY
  17. LYRICA [Suspect]
     Active Substance: PREGABALIN
     Indication: POLYNEUROPATHY
     Dosage: 100 MG, 3X/DAY
     Route: 048

REACTIONS (13)
  - Hypoaesthesia [Unknown]
  - Balance disorder [Unknown]
  - Diarrhoea [Unknown]
  - Sweat gland disorder [Unknown]
  - Drug ineffective [Unknown]
  - Pain [Unknown]
  - Fall [Unknown]
  - Reflexes abnormal [Unknown]
  - Drug withdrawal syndrome [Unknown]
  - Nausea [Unknown]
  - Blood triglycerides increased [Unknown]
  - Muscle spasms [Unknown]
  - Neuropathy peripheral [Unknown]
